FAERS Safety Report 12268002 (Version 1)
Quarter: 2016Q2

REPORT INFORMATION
  Report Type: Report from Study
  Country: CA (occurrence: CA)
  Receive Date: 20160414
  Receipt Date: 20160414
  Transmission Date: 20160815
  Serious: Yes (Other)
  Sender: FDA-Public Use
  Company Number: CA-GILEAD-2016-0207263

PATIENT
  Age: 55 Year
  Sex: Female

DRUGS (2)
  1. IBAVYR [Concomitant]
     Active Substance: RIBAVIRIN
  2. SOFOSBUVIR [Suspect]
     Active Substance: SOFOSBUVIR
     Indication: PRODUCT USED FOR UNKNOWN INDICATION
     Dosage: 400 MG, UNK
     Route: 065
     Dates: end: 20160327

REACTIONS (3)
  - Headache [Unknown]
  - Chromatopsia [Unknown]
  - Blindness [Unknown]

NARRATIVE: CASE EVENT DATE: 20160313
